FAERS Safety Report 17074057 (Version 1)
Quarter: 2019Q4

REPORT INFORMATION
  Report Type: Spontaneous
  Country: JP (occurrence: JP)
  Receive Date: 20191126
  Receipt Date: 20191126
  Transmission Date: 20200122
  Serious: Yes (Other)
  Sender: FDA-Public Use
  Company Number: JP-AUROBINDO-AUR-APL-2019-074519

PATIENT
  Age: 81 Year
  Sex: Male

DRUGS (5)
  1. PRALATREXATE INJECTION [Suspect]
     Active Substance: PRALATREXATE
     Dosage: UNK
     Route: 042
  2. PRALATREXATE INJECTION [Suspect]
     Active Substance: PRALATREXATE
     Dosage: UNK
     Route: 042
  3. PRALATREXATE INJECTION [Suspect]
     Active Substance: PRALATREXATE
     Dosage: UNK
     Route: 042
  4. PRALATREXATE INJECTION [Suspect]
     Active Substance: PRALATREXATE
     Dosage: UNK
     Route: 042
  5. PRALATREXATE INJECTION [Suspect]
     Active Substance: PRALATREXATE
     Indication: PERIPHERAL T-CELL LYMPHOMA UNSPECIFIED
     Dosage: UNK
     Route: 042
     Dates: start: 201806

REACTIONS (3)
  - Stomatitis [Recovering/Resolving]
  - Condition aggravated [Unknown]
  - Hypophagia [Unknown]
